FAERS Safety Report 5941556-7 (Version None)
Quarter: 2008Q4

REPORT INFORMATION
  Report Type: 
  Country: None (occurrence: None)
  Receive Date: 20081105
  Receipt Date: 20081027
  Transmission Date: 20090506
  Serious: Yes (Hospitalization)
  Sender: FDA-Public Use
  Company Number: JP-NOVOPROD-280440

PATIENT
  Age: 60 Year
  Sex: Male

DRUGS (4)
  1. INNOLET 30R CHU [Suspect]
     Indication: INSULIN-REQUIRING TYPE 2 DIABETES MELLITUS
     Dosage: 40 IU, (28-0-12) QD
     Route: 058
  2. INNOLET 30R CHU [Suspect]
     Dosage: 60 IU (40-0-20) QD
     Route: 058
  3. NAUZELIN [Concomitant]
     Indication: NAUSEA
     Route: 048
  4. MEXITIL [Concomitant]
     Route: 048

REACTIONS (4)
  - ANOREXIA [None]
  - FRACTURE [None]
  - NAUSEA [None]
  - ORAL DISCOMFORT [None]
